FAERS Safety Report 7801665-4 (Version None)
Quarter: 2011Q4

REPORT INFORMATION
  Report Type: 
  Country: None (occurrence: None)
  Receive Date: 20111007
  Receipt Date: 20110929
  Transmission Date: 20120403
  Serious: Yes (Hospitalization, Disabling)
  Sender: FDA-Public Use
  Company Number: JP-ASTELLAS-2011JP005533

PATIENT
  Sex: Female
  Weight: 37.4 kg

DRUGS (25)
  1. PROGRAF [Suspect]
     Indication: SYSTEMIC LUPUS ERYTHEMATOSUS
     Dosage: 3 MG, UID/QD
     Route: 048
     Dates: start: 20101217, end: 20110803
  2. PROGRAF [Suspect]
     Indication: OPTIC NEURITIS
  3. PREDNISOLONE [Concomitant]
     Indication: OPTIC NEURITIS
     Dosage: 30 MG, UNKNOWN/D
     Route: 048
  4. PREDNISOLONE [Concomitant]
     Dosage: 10 MG, UNKNOWN/D
     Route: 048
  5. PREDNISOLONE [Concomitant]
     Dosage: 20 MG, UNKNOWN/D
     Route: 048
     Dates: start: 20100914, end: 20100924
  6. DIOVAN [Concomitant]
     Dosage: 80 MG, UNKNOWN/D
     Route: 048
  7. SORBITOL 50PC INJ [Concomitant]
     Indication: CONSTIPATION
     Dosage: 10 ML, TID
     Route: 048
  8. LIPLE [Concomitant]
     Indication: PERIPHERAL VASCULAR DISORDER
     Dosage: 10 UG, UNKNOWN/D
     Route: 042
     Dates: start: 20101228
  9. PREDNISOLONE [Concomitant]
     Dosage: 35 MG, UNKNOWN/D
     Route: 048
     Dates: start: 20100718, end: 20100816
  10. PREDNISOLONE [Concomitant]
     Dosage: 15 MG, UNKNOWN/D
     Route: 048
     Dates: start: 20100925, end: 20101022
  11. PREDNISOLONE [Concomitant]
     Dosage: 12.5 MG, UNKNOWN/D
     Route: 048
     Dates: start: 20101023, end: 20101217
  12. PREDNISOLONE [Concomitant]
     Dosage: 10 MG, UNKNOWN/D
     Route: 048
     Dates: start: 20101218
  13. GASMOTIN [Concomitant]
     Indication: GASTRITIS
     Dosage: 5 MG, TID
     Route: 048
  14. CALCIUM CARBONATE [Suspect]
     Indication: HYPERPHOSPHATAEMIA
     Dosage: 1 G, TID
     Route: 048
     Dates: end: 20110803
  15. PREDNISOLONE [Concomitant]
     Dosage: 20 MG, UNKNOWN/D
     Route: 048
  16. OMEPRAZOLE [Concomitant]
     Indication: GASTROOESOPHAGEAL REFLUX DISEASE
     Dosage: 20 MG, UID/QD
     Route: 048
  17. METHYLPREDNISOLONE [Concomitant]
     Indication: OPTIC NEURITIS
     Dosage: 0.5 G, UNKNOWN/D
     Route: 065
     Dates: start: 20100715, end: 20100717
  18. LEVOTHYROXINE SODIUM [Concomitant]
     Indication: HYPOTHYROIDISM
     Dosage: 25 UG, UID/QD
     Route: 048
  19. EXFORGE [Concomitant]
     Indication: HYPERTENSION
     Dosage: 1 DF, UID/QD
     Route: 048
  20. FOSRENOL [Concomitant]
     Indication: HYPERPHOSPHATAEMIA
     Dosage: 250 MG, TID
     Route: 048
  21. PREDNISOLONE [Concomitant]
     Dosage: 30 MG, UNKNOWN/D
     Route: 048
     Dates: start: 20100817, end: 20100830
  22. PREDNISOLONE [Concomitant]
     Dosage: 25 MG, UNKNOWN/D
     Route: 048
     Dates: start: 20100831, end: 20100913
  23. AMLODIPINE [Concomitant]
     Indication: HYPERTENSION
     Dosage: 5 MG, UID/QD
     Route: 048
  24. PREDNISOLONE [Concomitant]
     Indication: SYSTEMIC LUPUS ERYTHEMATOSUS
     Dosage: 40 MG, UNKNOWN/D
     Route: 048
  25. METHYLPREDNISOLONE [Concomitant]
     Indication: SYSTEMIC LUPUS ERYTHEMATOSUS
     Dosage: 1 G, UNKNOWN/D
     Route: 065
     Dates: start: 20100525, end: 20100527

REACTIONS (5)
  - VASCULAR CALCIFICATION [None]
  - OROPHARYNGEAL PAIN [None]
  - PERIPHERAL VASCULAR DISORDER [None]
  - PARONYCHIA [None]
  - GINGIVITIS [None]
